FAERS Safety Report 20126882 (Version 1)
Quarter: 2021Q4

REPORT INFORMATION
  Report Type: Spontaneous
  Country: CA (occurrence: CA)
  Receive Date: 20211129
  Receipt Date: 20211129
  Transmission Date: 20220303
  Serious: Yes (Other)
  Sender: FDA-Public Use
  Company Number: CA-PFIZER INC-202101587855

PATIENT
  Age: 65 Year
  Sex: Male

DRUGS (2)
  1. BEVACIZUMAB [Suspect]
     Active Substance: BEVACIZUMAB
     Indication: Glaucoma
     Dosage: 1.25 MG
     Route: 021
  2. ACETAZOLAMIDE [Concomitant]
     Active Substance: ACETAZOLAMIDE
     Indication: Glaucoma
     Dosage: UNK

REACTIONS (3)
  - Uveal melanoma [Unknown]
  - Drug ineffective for unapproved indication [Unknown]
  - Off label use [Unknown]
